FAERS Safety Report 6686180-6 (Version None)
Quarter: 2010Q2

REPORT INFORMATION
  Report Type: 
  Country: None (occurrence: None)
  Receive Date: 20100419
  Receipt Date: 20100413
  Transmission Date: 20101027
  Serious: Yes (Hospitalization)
  Sender: FDA-Public Use
  Company Number: PHHY2010RU23653

PATIENT
  Age: 31 Year
  Sex: Male

DRUGS (1)
  1. SEBIVO [Suspect]
     Dosage: UNK
     Route: 048

REACTIONS (4)
  - BLOOD PRESSURE INCREASED [None]
  - CLAUSTROPHOBIA [None]
  - DEPRESSION [None]
  - TRANSAMINASES INCREASED [None]
